FAERS Safety Report 17551277 (Version 2)
Quarter: 2020Q2

REPORT INFORMATION
  Report Type: Report from Study
  Country: US (occurrence: US)
  Receive Date: 20200317
  Receipt Date: 20200413
  Transmission Date: 20200713
  Serious: Yes (Hospitalization)
  Sender: FDA-Public Use
  Company Number: US-RETROPHIN, INC.-2020RTN00037

PATIENT
  Age: 14 Year
  Sex: Male
  Weight: 60.3 kg

DRUGS (1)
  1. CHOLIC ACID [Suspect]
     Active Substance: CHOLIC ACID
     Indication: INBORN ERROR IN PRIMARY BILE ACID SYNTHESIS
     Dosage: 500 MG, 2X/DAY
     Dates: start: 20200205

REACTIONS (3)
  - Inborn error in primary bile acid synthesis [Recovering/Resolving]
  - Pharyngitis streptococcal [Unknown]
  - Weight decreased [Recovering/Resolving]

NARRATIVE: CASE EVENT DATE: 202002
